FAERS Safety Report 7469024-4 (Version None)
Quarter: 2011Q2

REPORT INFORMATION
  Report Type: 
  Country: None (occurrence: None)
  Receive Date: 20110510
  Receipt Date: 20110426
  Transmission Date: 20111010
  Serious: Yes (Other)
  Sender: FDA-Public Use
  Company Number: US-RANBAXY-2011US-44134

PATIENT

DRUGS (5)
  1. HYOSCYAMINE [Concomitant]
     Indication: PRODUCT USED FOR UNKNOWN INDICATION
     Dosage: UNK
     Route: 065
  2. ROBAXIN [Concomitant]
     Indication: PRODUCT USED FOR UNKNOWN INDICATION
     Dosage: 750 MG, Q3H
     Route: 048
  3. CALAN [Suspect]
     Indication: MITRAL VALVE PROLAPSE
     Dosage: 120 MG, QD
     Route: 048
  4. AMITRIPTYLINE HCL [Concomitant]
     Indication: PRODUCT USED FOR UNKNOWN INDICATION
     Dosage: 50 MG, QD,AT NIGHT
     Route: 065
  5. SINGULAIR [Concomitant]
     Indication: PRODUCT USED FOR UNKNOWN INDICATION
     Dosage: UNK
     Route: 048

REACTIONS (4)
  - JAW OPERATION [None]
  - INTERVERTEBRAL DISC OPERATION [None]
  - GALLBLADDER OPERATION [None]
  - LIGAMENT OPERATION [None]
